FAERS Safety Report 17301346 (Version 1)
Quarter: 2020Q1

REPORT INFORMATION
  Report Type: Spontaneous
  Country: US (occurrence: US)
  Receive Date: 20200122
  Receipt Date: 20200122
  Transmission Date: 20200409
  Serious: No
  Sender: FDA-Public Use
  Company Number: US-DENTSPLY PHARMACEUTICAL-2019SCDP000533

PATIENT
  Age: 33 Year
  Sex: Female
  Weight: 93.44 kg

DRUGS (1)
  1. ORAQIX [Suspect]
     Active Substance: LIDOCAINE\PRILOCAINE
     Indication: PRODUCT USED FOR UNKNOWN INDICATION
     Dosage: ORAQIX GEL 20PK - COLLAR
     Dates: start: 20190920, end: 20190920

REACTIONS (4)
  - Rash erythematous [Recovered/Resolved]
  - Accidental exposure to product [Unknown]
  - Pruritus [Recovered/Resolved]
  - Peripheral swelling [Recovered/Resolved]

NARRATIVE: CASE EVENT DATE: 20190920
